FAERS Safety Report 7457921-5 (Version None)
Quarter: 2011Q2

REPORT INFORMATION
  Report Type: 
  Country: None (occurrence: None)
  Receive Date: 20110504
  Receipt Date: 20110428
  Transmission Date: 20111010
  Serious: Yes (Other)
  Sender: FDA-Public Use
  Company Number: US-PFIZER INC-2011093035

PATIENT
  Sex: Female
  Weight: 62.6 kg

DRUGS (3)
  1. PREMARIN [Suspect]
     Indication: CARDIAC DISORDER
  2. PREMARIN [Suspect]
     Indication: BONE DISORDER
  3. PREMARIN [Suspect]
     Indication: OFF LABEL USE
     Dosage: 0.3 MG, ALTERNATE DAY
     Route: 048
     Dates: start: 19730101

REACTIONS (2)
  - FALL [None]
  - POLYARTHRITIS [None]
